FAERS Safety Report 18818154 (Version 1)
Quarter: 2021Q1

REPORT INFORMATION
  Report Type: Other
  Country: JP (occurrence: JP)
  Receive Date: 20210202
  Receipt Date: 20210202
  Transmission Date: 20210419
  Serious: Yes (Hospitalization, Other)
  Sender: FDA-Public Use
  Company Number: JP-ROCHE-2760216

PATIENT
  Age: 8 Decade
  Sex: Male

DRUGS (5)
  1. FLUOROURACIL. [Concomitant]
     Active Substance: FLUOROURACIL
     Dosage: DOSAGE IS UNCERTAIN.
     Route: 041
  2. AVASTIN [Suspect]
     Active Substance: BEVACIZUMAB
     Indication: COLORECTAL CANCER
     Dosage: DOSAGE IS UNCERTAIN.
     Route: 041
  3. OXALIPLATIN. [Concomitant]
     Active Substance: OXALIPLATIN
     Indication: COLORECTAL CANCER
     Dosage: DOSAGE IS UNCERTAIN.
     Route: 041
  4. LEVOFOLINATE CALCIUM [Concomitant]
     Active Substance: LEVOLEUCOVORIN CALCIUM
     Indication: COLORECTAL CANCER
     Dosage: DOSAGE IS UNCERTAIN.
     Route: 041
  5. FLUOROURACIL. [Concomitant]
     Active Substance: FLUOROURACIL
     Indication: COLORECTAL CANCER
     Dosage: DOSAGE IS UNCERTAIN.
     Route: 040

REACTIONS (4)
  - Vascular device infection [Unknown]
  - Wound infection [Recovering/Resolving]
  - Septic shock [Unknown]
  - Large intestine perforation [Unknown]
